FAERS Safety Report 4920122-6 (Version None)
Quarter: 2006Q1

REPORT INFORMATION
  Report Type: 
  Country: None (occurrence: None)
  Receive Date: 20060217
  Receipt Date: 20060206
  Transmission Date: 20060701
  Serious: Yes (Death, Hospitalization)
  Sender: FDA-Public Use
  Company Number: 2006020272

PATIENT
  Sex: Female

DRUGS (10)
  1. PANTOPRAZOLE SODIUM [Suspect]
     Indication: ILL-DEFINED DISORDER
  2. ACETYLSALICYLIC ACID (ACETYLSALICYCLIC ACID) [Suspect]
     Indication: ILL-DEFINED DISORDER
     Dosage: 75 MG
  3. PREDNISOLONE [Suspect]
     Indication: ILL-DEFINED DISORDER
  4. SPIRIVA [Suspect]
     Indication: CHRONIC OBSTRUCTIVE PULMONARY DISEASE
     Dosage: 18 (1 IN 1 D),INHALATION
  5. VENTOLIN [Suspect]
     Indication: ILL-DEFINED DISORDER
     Dosage: 2.5 MG
  6. FLUTICASONE PROPIONATE [Suspect]
     Dosage: (DF),INHALATION
  7. CANESTEN (CLOTRIMAZOLE) [Concomitant]
  8. CALCICHEW-D3 (CALCIUM CARBONATE, COLECALCIFEROL) [Concomitant]
  9. GAVISCON [Concomitant]
  10. RAMIPRIL [Concomitant]

REACTIONS (3)
  - CARDIAC FAILURE [None]
  - PANCREATITIS ACUTE [None]
  - PERITONITIS [None]
